FAERS Safety Report 5375658-3 (Version None)
Quarter: 2007Q2

REPORT INFORMATION
  Report Type: 
  Country: None (occurrence: None)
  Receive Date: 20070628
  Receipt Date: 20070613
  Transmission Date: 20071010
  Serious: Yes (Other)
  Sender: FDA-Public Use
  Company Number: 07-001327

PATIENT
  Age: 71 Year
  Sex: Female

DRUGS (2)
  1. ERYC [Suspect]
     Dosage: 1 G OVER 24 HOURS; ORAL
     Route: 048
  2. DIGOXIN [Suspect]
     Dosage: 0.25 MG, QD; ORAL, QD
     Route: 048

REACTIONS (5)
  - CARDIOACTIVE DRUG LEVEL INCREASED [None]
  - DRUG INTERACTION [None]
  - NAUSEA [None]
  - NODAL RHYTHM [None]
  - VOMITING [None]
